FAERS Safety Report 21275412 (Version 1)
Quarter: 2022Q3

REPORT INFORMATION
  Report Type: Spontaneous
  Country: US (occurrence: US)
  Receive Date: 20220831
  Receipt Date: 20220831
  Transmission Date: 20221027
  Serious: Yes (Life-Threatening, Hospitalization, Other)
  Sender: FDA-Public Use
  Company Number: US-HORIZON THERAPEUTICS-HZN-2022-006528

PATIENT

DRUGS (2)
  1. RAYOS [Suspect]
     Active Substance: PREDNISONE
     Indication: Rheumatoid arthritis
     Route: 065
  2. TOFACITINIB [Concomitant]
     Active Substance: TOFACITINIB
     Dosage: 11 MG, QD
     Route: 065

REACTIONS (4)
  - Endocarditis bacterial [Unknown]
  - Acute pulmonary oedema [Unknown]
  - Atrial fibrillation [Unknown]
  - Urinary tract infection bacterial [Recovered/Resolved]
